FAERS Safety Report 24204218 (Version 2)
Quarter: 2024Q3

REPORT INFORMATION
  Report Type: Report from Study
  Country: IL (occurrence: IL)
  Receive Date: 20240813
  Receipt Date: 20240816
  Transmission Date: 20241016
  Serious: Yes (Hospitalization)
  Sender: ABBVIE
  Company Number: IL-ABBVIE-5875826

PATIENT
  Age: 73 Year
  Sex: Male

DRUGS (3)
  1. CARBIDOPA\LEVODOPA [Suspect]
     Active Substance: CARBIDOPA\LEVODOPA
     Indication: Parkinson^s disease
     Route: 050
     Dates: start: 20211122
  2. CARBIDOPA\LEVODOPA [Suspect]
     Active Substance: CARBIDOPA\LEVODOPA
     Dosage: MORNING DOSE: 9ML, CONTINUOUS DOSE 4ML/H, EXTRA DOSE 2ML, NIGHT 2ML/H?REMAINS AT 24HRS
     Route: 050
     Dates: end: 20240808
  3. CARBIDOPA\LEVODOPA [Suspect]
     Active Substance: CARBIDOPA\LEVODOPA
     Dosage: RECEIVED AT NIGHT A DOSE OF FOUR INSTEAD OF THREE.
     Route: 050
     Dates: start: 20240808

REACTIONS (4)
  - Hyponatraemia [Recovered/Resolved]
  - Urinary tract infection [Recovering/Resolving]
  - Incorrect dose administered [Unknown]
  - Confusional state [Not Recovered/Not Resolved]

NARRATIVE: CASE EVENT DATE: 20240801
